FAERS Safety Report 5503774-1 (Version None)
Quarter: 2007Q4

REPORT INFORMATION
  Report Type: 
  Country: None (occurrence: None)
  Receive Date: 20071101
  Receipt Date: 20071027
  Transmission Date: 20080405
  Serious: Yes (Death)
  Sender: FDA-Public Use
  Company Number: DZ-BRISTOL-MYERS SQUIBB COMPANY-13962469

PATIENT
  Age: 78 Year
  Sex: Female
  Weight: 60 kg

DRUGS (4)
  1. COAPROVEL [Suspect]
     Indication: HYPERTENSION
     Dosage: 1 DOSAGE FORM=300 MG/12.5 MG
     Route: 048
     Dates: start: 20070909, end: 20071012
  2. DIGOXIN [Concomitant]
     Indication: HYPERTENSIVE HEART DISEASE
     Dosage: 1 DOSAGE FORM=1/2 TAB
     Route: 048
  3. CORDARONE [Concomitant]
     Indication: HYPERTENSIVE HEART DISEASE
     Dosage: 1 DOSAGE FORM=1/2 TAB
     Route: 048
  4. ASPEGIC 325 [Concomitant]
     Indication: HYPERTENSIVE HEART DISEASE
     Dosage: 1 DOSAGE FORM = 1 TAB
     Route: 048

REACTIONS (2)
  - DYSPEPSIA [None]
  - HYPERTENSIVE HEART DISEASE [None]
